FAERS Safety Report 24024138 (Version 2)
Quarter: 2024Q3

REPORT INFORMATION
  Report Type: Spontaneous
  Country: FR (occurrence: FR)
  Receive Date: 20240627
  Receipt Date: 20240710
  Transmission Date: 20241016
  Serious: No
  Sender: ROCHE
  Company Number: FR-ROCHE-3561337

PATIENT
  Age: 75 Year
  Sex: Female

DRUGS (3)
  1. VABYSMO [Suspect]
     Active Substance: FARICIMAB\FARICIMAB-SVOA
     Indication: Neovascular age-related macular degeneration
     Dosage: 1ST IVT: 16-NOV-2023 2ND IVT : 14-DEC-2023?3RD IVT : 11-JAN-2024 4TH IVT : 08-FEB-2024, 5TH IVT : 14
     Route: 050
     Dates: start: 20231116, end: 20240314
  2. VABYSMO [Suspect]
     Active Substance: FARICIMAB\FARICIMAB-SVOA
     Route: 050
  3. VABYSMO [Suspect]
     Active Substance: FARICIMAB\FARICIMAB-SVOA
     Route: 050

REACTIONS (3)
  - Eye inflammation [Recovered/Resolved]
  - Iridocyclitis [Recovered/Resolved]
  - Vitritis [Recovered/Resolved]

NARRATIVE: CASE EVENT DATE: 20240412
